FAERS Safety Report 17509834 (Version 2)
Quarter: 2020Q2

REPORT INFORMATION
  Report Type: Spontaneous
  Country: US (occurrence: US)
  Receive Date: 20200306
  Receipt Date: 20200403
  Transmission Date: 20200713
  Serious: Yes (Other)
  Sender: FDA-Public Use
  Company Number: US-APOTEX-2020AP007716

PATIENT
  Sex: Female

DRUGS (13)
  1. CYCLOSPORINE. [Suspect]
     Active Substance: CYCLOSPORINE
     Indication: PALMOPLANTAR PUSTULOSIS
     Dosage: 400 MG, UNK
     Route: 065
     Dates: start: 200806, end: 200807
  2. CYCLOSPORINE. [Suspect]
     Active Substance: CYCLOSPORINE
     Dosage: 200 MG, UNK
     Route: 065
     Dates: start: 200908, end: 201002
  3. CYCLOSPORINE. [Suspect]
     Active Substance: CYCLOSPORINE
     Dosage: 200 MG, UNK
     Route: 065
     Dates: start: 201409, end: 201412
  4. ACITRETIN. [Concomitant]
     Active Substance: ACITRETIN
     Indication: PALMOPLANTAR PUSTULOSIS
     Dosage: UNK
     Route: 065
     Dates: start: 201409, end: 201412
  5. CYCLOSPORINE. [Suspect]
     Active Substance: CYCLOSPORINE
     Dosage: 200 MG, UNK
     Route: 065
     Dates: start: 201302, end: 201306
  6. CYCLOSPORINE. [Suspect]
     Active Substance: CYCLOSPORINE
     Dosage: 200 MG, UNK
     Route: 065
     Dates: start: 201404, end: 201407
  7. DAPSONE. [Concomitant]
     Active Substance: DAPSONE
     Indication: PALMOPLANTAR PUSTULOSIS
     Dosage: UNK
     Route: 061
     Dates: start: 201011, end: 201302
  8. ISOTRETINOIN. [Concomitant]
     Active Substance: ISOTRETINOIN
     Indication: PALMOPLANTAR PUSTULOSIS
     Dosage: UNK
     Route: 065
     Dates: start: 200910, end: 201002
  9. CYCLOSPORINE. [Suspect]
     Active Substance: CYCLOSPORINE
     Dosage: 200 MG, UNK
     Route: 065
     Dates: start: 201711, end: 201711
  10. TOCILIZUMAB. [Concomitant]
     Active Substance: TOCILIZUMAB
     Indication: PALMOPLANTAR PUSTULOSIS
     Dosage: UNK
     Route: 065
     Dates: start: 201505, end: 201711
  11. APREMILAST [Concomitant]
     Active Substance: APREMILAST
     Indication: PALMOPLANTAR PUSTULOSIS
     Dosage: UNK
     Route: 065
     Dates: start: 201501, end: 201711
  12. CYCLOSPORINE. [Suspect]
     Active Substance: CYCLOSPORINE
     Dosage: UNK
     Route: 065
     Dates: start: 201011, end: 201302
  13. METHOTREXATE. [Suspect]
     Active Substance: METHOTREXATE
     Indication: PALMOPLANTAR PUSTULOSIS
     Dosage: UNK
     Route: 065
     Dates: start: 201404, end: 201407

REACTIONS (5)
  - Blood creatinine increased [Unknown]
  - Renal failure [Recovered/Resolved]
  - Vomiting [Unknown]
  - Nausea [Unknown]
  - Oesophagitis [Unknown]

NARRATIVE: CASE EVENT DATE: 2008
